FAERS Safety Report 5128280-8 (Version None)
Quarter: 2006Q4

REPORT INFORMATION
  Report Type: 
  Country: None (occurrence: None)
  Receive Date: 20061011
  Receipt Date: 20060922
  Transmission Date: 20070319
  Serious: Yes (Other)
  Sender: FDA-Public Use
  Company Number: US200609006132

PATIENT
  Age: 74 Year
  Sex: Female

DRUGS (6)
  1. FORTEO [Suspect]
     Indication: OSTEOPOROSIS
     Dates: start: 20060601
  2. CITRACAL + D (CALCIUM CITRATE, ERGOCALCIFEROL) [Concomitant]
  3. PATANOL (OLOPATADINE HYDROCHLORIDE) EYE DROPS [Concomitant]
  4. CLUCOSAMINE W/CHONDROITIN (CHONDROITIN SULFATE, GLUCOSAMINE) [Concomitant]
  5. CENTRUM SILVER (ASCORBIC ACID, CALCIUM, MINERALS NOS, RETINOL, TOCOPHE [Concomitant]
  6. FORTEO [Concomitant]

REACTIONS (3)
  - PHARMACEUTICAL PRODUCT COMPLAINT [None]
  - UTERINE CANCER [None]
  - UTERINE LEIOMYOMA [None]
